FAERS Safety Report 10482737 (Version 2)
Quarter: 2014Q4

REPORT INFORMATION
  Report Type: Spontaneous
  Country: US (occurrence: US)
  Receive Date: 20140929
  Receipt Date: 20141017
  Transmission Date: 20150528
  Serious: No
  Sender: FDA-Public Use
  Company Number: US-009507513-1409USA012963

PATIENT
  Sex: Female
  Weight: 6.8 kg

DRUGS (2)
  1. MIRALAX [Suspect]
     Active Substance: POLYETHYLENE GLYCOL 3350
     Indication: CONSTIPATION
  2. MIRALAX [Suspect]
     Active Substance: POLYETHYLENE GLYCOL 3350
     Indication: GASTROINTESTINAL MOTILITY DISORDER
     Dosage: 11.33 G, QID
     Route: 048
     Dates: start: 201404, end: 201409

REACTIONS (5)
  - Prescribed overdose [Unknown]
  - Product use issue [Unknown]
  - Drug administered to patient of inappropriate age [Unknown]
  - Inappropriate schedule of drug administration [Unknown]
  - Tremor [Recovered/Resolved]

NARRATIVE: CASE EVENT DATE: 2014
